FAERS Safety Report 13296267 (Version 1)
Quarter: 2017Q1

REPORT INFORMATION
  Report Type: Spontaneous
  Country: IN (occurrence: IN)
  Receive Date: 20170304
  Receipt Date: 20170304
  Transmission Date: 20170428
  Serious: Yes (Death, Hospitalization, Other)
  Sender: FDA-Public Use
  Company Number: IN-BRISTOL-MYERS SQUIBB COMPANY-BMS-2017-016636

PATIENT
  Age: 50 Year
  Sex: Male

DRUGS (1)
  1. OPDYTA [Suspect]
     Active Substance: NIVOLUMAB
     Indication: TONGUE NEOPLASM MALIGNANT STAGE UNSPECIFIED
     Dosage: 200 MG, Q2WK
     Route: 042
     Dates: start: 20161228

REACTIONS (3)
  - Malignant neoplasm progression [Fatal]
  - Posterior reversible encephalopathy syndrome [Unknown]
  - Product use issue [Unknown]
